FAERS Safety Report 8999711 (Version 1)
Quarter: 2013Q1

REPORT INFORMATION
  Report Type: Spontaneous
  Country: FR (occurrence: FR)
  Receive Date: 20130102
  Receipt Date: 20130102
  Transmission Date: 20140127
  Serious: Yes (Hospitalization)
  Sender: FDA-Public Use
  Company Number: FR-GLAXOSMITHKLINE-B0854229A

PATIENT
  Age: 59 None
  Sex: Male
  Weight: 60 kg

DRUGS (17)
  1. ZELITREX [Suspect]
     Indication: CYTOMEGALOVIRUS COLITIS
     Route: 048
     Dates: start: 201202, end: 20121026
  2. BACTRIM [Concomitant]
  3. PROGRAF [Concomitant]
  4. CORTANCYL [Concomitant]
  5. PARIET [Concomitant]
  6. KAYEXALATE [Concomitant]
  7. NORSET [Concomitant]
  8. IMOVANE [Concomitant]
  9. DOLIPRANE [Concomitant]
  10. TRIATEC [Concomitant]
  11. LANTUS [Concomitant]
  12. TAMSULOSINE [Concomitant]
  13. NOVORAPID [Concomitant]
  14. SORBITOL [Concomitant]
  15. VALGANCICLOVIR HYDROCHLORIDE [Concomitant]
     Dates: end: 201207
  16. EUPRESSYL [Concomitant]
  17. SERTRALINE [Concomitant]
     Indication: DEPRESSION

REACTIONS (12)
  - Altered state of consciousness [Recovered/Resolved]
  - Coma [Recovered/Resolved]
  - Dyskinesia [Recovered/Resolved]
  - Confusional state [Unknown]
  - Extrapyramidal disorder [Unknown]
  - Renal failure chronic [Unknown]
  - Sepsis [Unknown]
  - Anterograde amnesia [Unknown]
  - Overdose [Unknown]
  - Ischaemic stroke [Unknown]
  - Hemiparesis [Unknown]
  - Speech disorder [Unknown]
